FAERS Safety Report 6175511-1 (Version None)
Quarter: 2009Q2

REPORT INFORMATION
  Report Type: 
  Country: None (occurrence: None)
  Receive Date: 20090429
  Receipt Date: 20090420
  Transmission Date: 20091009
  Serious: Yes (Hospitalization)
  Sender: FDA-Public Use
  Company Number: 2009SP006653

PATIENT
  Age: 64 Year
  Sex: Female

DRUGS (7)
  1. NASONEX [Suspect]
     Indication: SINUSITIS
     Dosage: NAS, 200 MCG; QD
     Dates: start: 20050222
  2. NASONEX [Suspect]
     Indication: SINUSITIS
     Dosage: NAS, 200 MCG; QD
     Dates: start: 20090201
  3. PREDNISOLONE [Suspect]
     Indication: DRUG USE FOR UNKNOWN INDICATION
     Dosage: 30 MG; QD; PO
     Route: 048
     Dates: start: 20090317
  4. DIOVAN [Concomitant]
  5. SERETIDE [Concomitant]
  6. AMIMOX [Concomitant]
  7. SINGULAIR [Concomitant]

REACTIONS (3)
  - DIZZINESS [None]
  - MALAISE [None]
  - VOMITING [None]
